FAERS Safety Report 6309765-5 (Version None)
Quarter: 2009Q3

REPORT INFORMATION
  Report Type: 
  Country: None (occurrence: None)
  Receive Date: 20090811
  Receipt Date: 20090701
  Transmission Date: 20100115
  Serious: No
  Sender: FDA-Public Use
  Company Number: 1000007174

PATIENT
  Age: 65 Year
  Sex: Female

DRUGS (13)
  1. SAVELLA [Suspect]
     Indication: FIBROMYALGIA
     Dosage: 12.5 MG (12.5 MG, 1 IN 1 D),ORAL : 25 MG (12.5 MG, 2 IN 1 D),ORAL : 50 MG (25 MG, 2 IN 1 D),ORAL
     Route: 048
     Dates: start: 20090604, end: 20090604
  2. SAVELLA [Suspect]
     Indication: FIBROMYALGIA
     Dosage: 12.5 MG (12.5 MG, 1 IN 1 D),ORAL : 25 MG (12.5 MG, 2 IN 1 D),ORAL : 50 MG (25 MG, 2 IN 1 D),ORAL
     Route: 048
     Dates: start: 20090605, end: 20090606
  3. SAVELLA [Suspect]
     Indication: FIBROMYALGIA
     Dosage: 12.5 MG (12.5 MG, 1 IN 1 D),ORAL : 25 MG (12.5 MG, 2 IN 1 D),ORAL : 50 MG (25 MG, 2 IN 1 D),ORAL
     Route: 048
     Dates: start: 20090607, end: 20090610
  4. SAVELLA [Suspect]
     Indication: FIBROMYALGIA
     Dosage: 100 MG (50 MG, 2 IN 1 D) , ORAL
     Route: 048
     Dates: start: 20090611, end: 20090625
  5. SIMVASTATIN [Concomitant]
  6. LEVOXYL [Concomitant]
  7. AMBIEN [Concomitant]
  8. FLEXERIL [Concomitant]
  9. LASIX [Concomitant]
  10. CARDURA [Concomitant]
  11. LYRICA [Concomitant]
  12. MONOPRIL [Concomitant]
  13. CLONAZEPAM [Concomitant]

REACTIONS (5)
  - ABDOMINAL DISCOMFORT [None]
  - GASTROOESOPHAGEAL REFLUX DISEASE [None]
  - HYPOAESTHESIA [None]
  - INSOMNIA [None]
  - PRURITUS GENERALISED [None]
